FAERS Safety Report 4365886-8 (Version None)
Quarter: 2004Q2

REPORT INFORMATION
  Report Type: 
  Country: None (occurrence: None)
  Receive Date: 20040521
  Receipt Date: 20040517
  Transmission Date: 20050107
  Serious: Yes (Hospitalization)
  Sender: FDA-Public Use
  Company Number: 2004CG00941

PATIENT
  Age: 55 Year
  Sex: Male

DRUGS (10)
  1. EMLA [Suspect]
     Dates: end: 20031124
  2. BEFIZAL [Concomitant]
  3. MORPHINE [Concomitant]
  4. MOPRAL [Concomitant]
  5. FRAXIPARINE     FRA [Concomitant]
  6. BI-PROFENID [Concomitant]
  7. AERIUS [Concomitant]
  8. AMITRIPTYLINE HCL [Concomitant]
  9. RIVOTRIL [Concomitant]
  10. ACETAMINOPHEN [Concomitant]

REACTIONS (1)
  - SULPHAEMOGLOBINAEMIA [None]
